FAERS Safety Report 7324487-X (Version None)
Quarter: 2011Q1

REPORT INFORMATION
  Report Type: 
  Country: None (occurrence: None)
  Receive Date: 20110218
  Receipt Date: 20110210
  Transmission Date: 20110831
  Serious: Yes (Hospitalization)
  Sender: FDA-Public Use
  Company Number: 2009-189352-NL

PATIENT
  Age: 35 Year
  Sex: Female
  Weight: 77.1 kg

DRUGS (4)
  1. HEPARIN [Suspect]
     Indication: ANTICOAGULANT THERAPY
     Dosage: IV
     Route: 042
     Dates: start: 20070122, end: 20070127
  2. NUVARING [Suspect]
     Indication: OVARIAN CYST
     Dates: start: 20070101, end: 20070101
  3. FLUOXETINE [Concomitant]
  4. VALTREX [Concomitant]

REACTIONS (25)
  - SINUSITIS [None]
  - EPISTAXIS [None]
  - LEUKOCYTOSIS [None]
  - CONSTIPATION [None]
  - OVARIAN CYST [None]
  - CHEST DISCOMFORT [None]
  - BRONCHITIS [None]
  - HAEMOGLOBIN DECREASED [None]
  - HAEMATOCRIT DECREASED [None]
  - POLLAKIURIA [None]
  - COAGULOPATHY [None]
  - PROTEIN S DEFICIENCY [None]
  - SPLENIC VEIN THROMBOSIS [None]
  - FIBRIN D DIMER INCREASED [None]
  - INTERNATIONAL NORMALISED RATIO INCREASED [None]
  - NAUSEA [None]
  - COMPUTERISED TOMOGRAM ABDOMEN ABNORMAL [None]
  - DEGENERATION OF UTERINE LEIOMYOMA [None]
  - UTERINE POLYPECTOMY [None]
  - SPLENOMEGALY [None]
  - CHROMATURIA [None]
  - PORTAL VEIN THROMBOSIS [None]
  - CARDIOLIPIN ANTIBODY POSITIVE [None]
  - INFLAMMATION [None]
  - VOMITING [None]
